FAERS Safety Report 22038524 (Version 1)
Quarter: 2023Q1

REPORT INFORMATION
  Report Type: Report from Study
  Country: US (occurrence: US)
  Receive Date: 20230227
  Receipt Date: 20230227
  Transmission Date: 20230417
  Serious: Yes (Hospitalization, Other)
  Sender: FDA-Public Use
  Company Number: US-TAKEDA-2022TUS093648

PATIENT
  Sex: Male

DRUGS (8)
  1. TEDUGLUTIDE [Suspect]
     Active Substance: TEDUGLUTIDE
     Indication: Short-bowel syndrome
     Dosage: 0.51 MILLILITER, QD
     Route: 058
     Dates: start: 20221018, end: 20230212
  2. TEDUGLUTIDE [Suspect]
     Active Substance: TEDUGLUTIDE
     Indication: Short-bowel syndrome
     Dosage: 0.51 MILLILITER, QD
     Route: 058
     Dates: start: 20221018, end: 20230212
  3. TEDUGLUTIDE [Suspect]
     Active Substance: TEDUGLUTIDE
     Indication: Short-bowel syndrome
     Dosage: 0.51 MILLILITER, QD
     Route: 058
     Dates: start: 20221018, end: 20230212
  4. TEDUGLUTIDE [Suspect]
     Active Substance: TEDUGLUTIDE
     Indication: Short-bowel syndrome
     Dosage: 0.51 MILLILITER, QD
     Route: 058
     Dates: start: 20221018, end: 20230212
  5. TEDUGLUTIDE [Suspect]
     Active Substance: TEDUGLUTIDE
     Dosage: 5.1 MILLIGRAM, QD
     Route: 058
     Dates: start: 20221023
  6. TEDUGLUTIDE [Suspect]
     Active Substance: TEDUGLUTIDE
     Dosage: 5.1 MILLIGRAM, QD
     Route: 058
     Dates: start: 20221023
  7. TEDUGLUTIDE [Suspect]
     Active Substance: TEDUGLUTIDE
     Dosage: 5.1 MILLIGRAM, QD
     Route: 058
     Dates: start: 20221023
  8. TEDUGLUTIDE [Suspect]
     Active Substance: TEDUGLUTIDE
     Dosage: 5.1 MILLIGRAM, QD
     Route: 058
     Dates: start: 20221023

REACTIONS (5)
  - Sepsis [Unknown]
  - Hyperhidrosis [Unknown]
  - White blood cell count increased [Unknown]
  - Gastroenteritis viral [Recovered/Resolved]
  - Blood phosphorus decreased [Unknown]
